FAERS Safety Report 5942292-3 (Version None)
Quarter: 2008Q4

REPORT INFORMATION
  Report Type: 
  Country: None (occurrence: None)
  Receive Date: 20081105
  Receipt Date: 20081023
  Transmission Date: 20090506
  Serious: Yes (Other)
  Sender: FDA-Public Use
  Company Number: US-ELI_LILLY_AND_COMPANY-US200804000215

PATIENT
  Sex: Female

DRUGS (10)
  1. CYMBALTA [Suspect]
     Indication: DEPRESSION
     Dosage: 60 MG, DAILY (1/D)
     Dates: end: 20080601
  2. CYMBALTA [Suspect]
     Dosage: 120 MG, DAILY (1/D)
     Dates: start: 20080601, end: 20080820
  3. CYMBALTA [Suspect]
     Dosage: 60 MG, 2/D
     Dates: start: 20080820
  4. STRATTERA [Suspect]
     Dosage: 60 MG, UNK
  5. LORAZEPAM [Concomitant]
     Indication: ANXIETY
     Dosage: 0.5 MG, 2/D
     Dates: end: 20080601
  6. LORAZEPAM [Concomitant]
     Dosage: 1 MG, EACH EVENING
  7. LORAZEPAM [Concomitant]
     Dosage: 1 MG, 2/D
     Dates: start: 20080601, end: 20080820
  8. LORAZEPAM [Concomitant]
     Dosage: 1 MG, 3/D
     Dates: start: 20080820
  9. AMBIEN [Concomitant]
     Indication: SLEEP DISORDER
     Dosage: 5 MG, EACH EVENING
     Dates: end: 20080601
  10. AMBIEN [Concomitant]
     Dosage: 10 MG, EACH EVENING
     Dates: start: 20080601

REACTIONS (18)
  - ANOREXIA [None]
  - CRYING [None]
  - DIZZINESS [None]
  - ENDOMETRIOSIS [None]
  - FEELING ABNORMAL [None]
  - HEADACHE [None]
  - IRRITABILITY [None]
  - MALAISE [None]
  - MEDICATION ERROR [None]
  - NAUSEA [None]
  - PALPITATIONS [None]
  - ROAD TRAFFIC ACCIDENT [None]
  - SOMNOLENCE [None]
  - SUICIDAL IDEATION [None]
  - URINARY HESITATION [None]
  - URINARY RETENTION [None]
  - VISION BLURRED [None]
  - VOMITING [None]
